FAERS Safety Report 5835906-X (Version None)
Quarter: 2008Q3

REPORT INFORMATION
  Report Type: 
  Country: None (occurrence: None)
  Receive Date: 20080806
  Receipt Date: 20080729
  Transmission Date: 20090109
  Serious: Yes (Hospitalization, Other)
  Sender: FDA-Public Use
  Company Number: US-PFIZER INC-2008064380

PATIENT
  Sex: Female

DRUGS (3)
  1. LYRICA [Suspect]
     Indication: NEURALGIA
  2. CODEINE SUL TAB [Suspect]
  3. DRUG, UNSPECIFIED [Concomitant]

REACTIONS (12)
  - BALANCE DISORDER [None]
  - CEREBROVASCULAR ACCIDENT [None]
  - CONSTIPATION [None]
  - DIZZINESS [None]
  - DRUG INEFFECTIVE [None]
  - DRY MOUTH [None]
  - EUPHORIC MOOD [None]
  - HALLUCINATION [None]
  - HYPOACUSIS [None]
  - ILL-DEFINED DISORDER [None]
  - MALAISE [None]
  - VISION BLURRED [None]
